FAERS Safety Report 7366919-7 (Version None)
Quarter: 2011Q1

REPORT INFORMATION
  Report Type: 
  Country: None (occurrence: None)
  Receive Date: 20110322
  Receipt Date: 20110311
  Transmission Date: 20110831
  Serious: Yes (Hospitalization)
  Sender: FDA-Public Use
  Company Number: B0705693A

PATIENT
  Sex: Male

DRUGS (13)
  1. KARDEGIC [Suspect]
     Dosage: 1UNIT PER DAY
     Route: 048
  2. AMIODARONE HCL [Concomitant]
     Dosage: 200MG PER DAY
     Route: 065
  3. ARIXTRA [Suspect]
     Indication: PRODUCT USED FOR UNKNOWN INDICATION
     Dosage: 7.5MG PER DAY
     Route: 058
     Dates: start: 20101122, end: 20110102
  4. MEMANTINE [Concomitant]
     Dosage: 20DROP PER DAY
     Route: 065
  5. HEMIGOXINE [Concomitant]
     Dosage: .125MG PER DAY
     Route: 065
  6. EXELON [Concomitant]
     Dosage: 9MG PER DAY
     Route: 065
  7. PERFALGAN [Concomitant]
     Dosage: 4UNIT PER DAY
     Route: 065
  8. ZOPHREN [Concomitant]
     Dosage: 12MG PER DAY
     Route: 048
  9. MODOPAR [Concomitant]
     Dosage: 1G PER DAY
     Route: 065
  10. PRAXILENE [Concomitant]
     Dosage: 600MG PER DAY
     Route: 065
  11. ACUPAN [Concomitant]
     Route: 065
  12. ACTISKENAN [Concomitant]
     Dosage: 4UNIT PER DAY
     Route: 065
  13. PREVISCAN [Concomitant]
     Route: 048
     Dates: end: 20101122

REACTIONS (5)
  - IMPLANT SITE WARMTH [None]
  - INDURATION [None]
  - JOINT RANGE OF MOTION DECREASED [None]
  - HAEMATOMA [None]
  - INCORRECT DRUG ADMINISTRATION DURATION [None]
